FAERS Safety Report 4601035-6 (Version None)
Quarter: 2005Q2

REPORT INFORMATION
  Report Type: 
  Country: None (occurrence: None)
  Receive Date: 20050127
  Receipt Date: 20041111
  Transmission Date: 20051028
  Serious: No
  Sender: FDA-Public Use
  Company Number: USA041183842

PATIENT
  Age: 13 Year
  Sex: Female

DRUGS (3)
  1. PROZAC [Suspect]
     Indication: BIPOLAR DISORDER
     Dates: start: 20040101
  2. STRATTERA [Suspect]
     Indication: ATTENTION DEFICIT/HYPERACTIVITY DISORDER
     Dosage: 40 MG IN THE MORNING
     Dates: start: 20041111
  3. ABILIFY (ARIPIRAZOLE) [Concomitant]

REACTIONS (3)
  - FATIGUE [None]
  - FEELING COLD [None]
  - TREMOR [None]
